FAERS Safety Report 4960053-9 (Version None)
Quarter: 2006Q1

REPORT INFORMATION
  Report Type: 
  Country: None (occurrence: None)
  Receive Date: 20060331
  Receipt Date: 20051122
  Transmission Date: 20060701
  Serious: Yes (Hospitalization)
  Sender: FDA-Public Use
  Company Number: US-MERCK-0511USA04046

PATIENT
  Age: 45 Year
  Sex: Female
  Weight: 77 kg

DRUGS (6)
  1. VIOXX [Suspect]
     Indication: OSTEOARTHRITIS
     Route: 048
     Dates: start: 20011220, end: 20031128
  2. ACIPHEX [Concomitant]
     Indication: GASTROOESOPHAGEAL REFLUX DISEASE
     Route: 048
  3. ADVIL [Concomitant]
     Indication: OSTEOARTHRITIS
     Route: 048
  4. ADVIL [Concomitant]
     Indication: PAIN
     Route: 048
  5. MOTRIN [Concomitant]
     Indication: OSTEOARTHRITIS
     Route: 048
  6. MOTRIN [Concomitant]
     Indication: PAIN
     Route: 048

REACTIONS (4)
  - BLADDER DISORDER [None]
  - HYPOTHYROIDISM [None]
  - TRANSIENT ISCHAEMIC ATTACK [None]
  - VAGINAL DISORDER [None]
